FAERS Safety Report 4370427-5 (Version None)
Quarter: 2004Q2

REPORT INFORMATION
  Report Type: 
  Country: None (occurrence: None)
  Receive Date: 20040603
  Receipt Date: 20040209
  Transmission Date: 20050107
  Serious: No
  Sender: FDA-Public Use
  Company Number: US-BRISTOL-MYERS SQUIBB COMPANY-12500427

PATIENT
  Age: 13 Year
  Sex: Male

DRUGS (2)
  1. ABILIFY [Suspect]
     Indication: BIPOLAR DISORDER
     Route: 048
     Dates: start: 20030929
  2. LAMICTAL [Concomitant]
     Indication: BIPOLAR DISORDER

REACTIONS (1)
  - LYMPHADENOPATHY [None]
